FAERS Safety Report 15475026 (Version 1)
Quarter: 2018Q4

REPORT INFORMATION
  Report Type: Spontaneous
  Country: ET (occurrence: ET)
  Receive Date: 20181008
  Receipt Date: 20181008
  Transmission Date: 20190205
  Serious: Yes (Death, Other)
  Sender: FDA-Public Use
  Company Number: ET-BAYER-2018-187575

PATIENT
  Age: 36 Year
  Sex: Male
  Weight: 92.6 kg

DRUGS (5)
  1. AVELOX [Suspect]
     Active Substance: MOXIFLOXACIN HYDROCHLORIDE
     Indication: TUBERCULOSIS
     Dosage: 400 MG, QD
     Route: 048
     Dates: start: 20180902, end: 20180906
  2. KANAMYCIN [Suspect]
     Active Substance: KANAMYCIN\KANAMYCIN A SULFATE
     Indication: TUBERCULOSIS
     Dosage: 750 MG, QD
     Route: 042
     Dates: start: 20171219, end: 20180808
  3. CLOFAZIMINE [Suspect]
     Active Substance: CLOFAZIMINE
     Indication: TUBERCULOSIS
  4. AVELOX [Suspect]
     Active Substance: MOXIFLOXACIN HYDROCHLORIDE
     Indication: TUBERCULOSIS
     Dosage: 400 MG, QD
     Route: 048
     Dates: start: 20171219, end: 20180808
  5. PYRAZINAMIDE. [Suspect]
     Active Substance: PYRAZINAMIDE
     Indication: TUBERCULOSIS
     Dosage: UNK
     Dates: start: 20170517

REACTIONS (10)
  - Pneumonia [Unknown]
  - Incorrect product administration duration [Unknown]
  - Cor pulmonale chronic [Fatal]
  - Tuberculosis [Unknown]
  - Malnutrition [Fatal]
  - Left ventricular dysfunction [Unknown]
  - Portal hypertension [Unknown]
  - Pulmonary hypertension [Fatal]
  - Electrocardiogram QT prolonged [Unknown]
  - Neuropathy peripheral [Unknown]
